FAERS Safety Report 6740251-4 (Version None)
Quarter: 2010Q2

REPORT INFORMATION
  Report Type: 
  Country: None (occurrence: None)
  Receive Date: 20100521
  Receipt Date: 20100517
  Transmission Date: 20101027
  Serious: Yes (Life-Threatening, Hospitalization)
  Sender: FDA-Public Use
  Company Number: 2010SP027174

PATIENT
  Age: 77 Year
  Sex: Female

DRUGS (21)
  1. MIRTAZAPINE [Suspect]
     Indication: INSOMNIA
     Dosage: 15 MG; PO
     Route: 048
     Dates: start: 20080916, end: 20080917
  2. ATHYMIL (MIANSERIN HYDROCHLORIDE /00390602/) [Suspect]
     Indication: DRUG USE FOR UNKNOWN INDICATION
     Dosage: 10 MG
     Dates: start: 20080915, end: 20080916
  3. LASILIX (FUROSEMIDE /00032601/) [Suspect]
     Indication: DRUG USE FOR UNKNOWN INDICATION
     Dosage: 40 MG; PO
     Route: 048
     Dates: start: 20080912, end: 20080913
  4. TRAMADOL HCL [Suspect]
     Indication: DRUG USE FOR UNKNOWN INDICATION
     Dosage: PO
     Route: 048
     Dates: start: 20080912, end: 20080913
  5. NICARDIPINE HCL [Suspect]
     Indication: DRUG USE FOR UNKNOWN INDICATION
     Dosage: 20 MG; PO
     Route: 048
     Dates: start: 20080916, end: 20080918
  6. OXAZEPAM [Suspect]
     Indication: DRUG USE FOR UNKNOWN INDICATION
     Dosage: 50 MG; PO
     Route: 048
     Dates: start: 20080916, end: 20080917
  7. TERCIAN (CYAMEMAZINE) [Suspect]
     Indication: DRUG USE FOR UNKNOWN INDICATION
     Dosage: PO
     Route: 048
     Dates: start: 20080916, end: 20080917
  8. LOXAPINE [Suspect]
     Indication: DRUG USE FOR UNKNOWN INDICATION
     Dosage: PO
     Route: 048
     Dates: start: 20080912, end: 20080915
  9. MEPRONIZINE (MEPRONIZINE/ 00789201/) [Suspect]
     Indication: DRUG USE FOR UNKNOWN INDICATION
     Dosage: ; PO
     Route: 048
     Dates: start: 20080912, end: 20080918
  10. PARKINANE (TRIHEXYPHENIDYL HYDROCHLORIDE /00002602/ ) [Suspect]
     Indication: DRUG USE FOR UNKNOWN INDICATION
     Dosage: PO
     Route: 048
     Dates: start: 20080912, end: 20080913
  11. RISPERDAL [Concomitant]
     Indication: DRUG USE FOR UNKNOWN INDICATION
     Dosage: 1 MG; PO
     Route: 048
     Dates: start: 20080912, end: 20080913
  12. CLONAZEPAM [Suspect]
     Indication: DRUG USE FOR UNKNOWN INDICATION
     Dosage: 2 MG; PO
     Route: 048
     Dates: start: 20080912, end: 20080916
  13. SECTRAL [Suspect]
     Indication: DRUG USE FOR UNKNOWN INDICATION
     Dosage: 400 MG;PO
     Route: 048
     Dates: start: 20080912, end: 20080913
  14. SECTRAL [Suspect]
     Indication: DRUG USE FOR UNKNOWN INDICATION
     Dosage: 400 MG;PO
     Route: 048
     Dates: start: 20080914, end: 20080918
  15. THERALENE (ALIMEMAZINE TARTRATE) [Suspect]
     Dosage: PO
     Route: 048
     Dates: start: 20080912, end: 20080915
  16. DOLIPRANE [Concomitant]
  17. IXEL [Concomitant]
  18. PREVISCAN [Concomitant]
  19. PLASMA-LYTE 56 AND DEXTROSE 5% IN PLASTIC CONTAINER [Concomitant]
  20. TRIATEC [Concomitant]
  21. PEVARYL [Concomitant]

REACTIONS (6)
  - AGITATION [None]
  - BLOOD PRESSURE IMMEASURABLE [None]
  - COMA [None]
  - CONFUSIONAL STATE [None]
  - INSOMNIA [None]
  - OXYGEN SATURATION DECREASED [None]
